FAERS Safety Report 22229969 (Version 1)
Quarter: 2023Q2

REPORT INFORMATION
  Report Type: Spontaneous
  Country: US (occurrence: None)
  Receive Date: 20230418
  Receipt Date: 20230418
  Transmission Date: 20230721
  Serious: No
  Sender: FDA-Public Use
  Company Number: None

PATIENT
  Age: 64 Year
  Sex: Female

DRUGS (1)
  1. LENALIDOMIDE [Suspect]
     Active Substance: LENALIDOMIDE
     Indication: Myelodysplastic syndrome
     Dosage: 10MG QD ORAL
     Route: 048
     Dates: start: 20211222

REACTIONS (4)
  - Product substitution issue [None]
  - Rash [None]
  - Pruritus [None]
  - Therapeutic response changed [None]

NARRATIVE: CASE EVENT DATE: 20220914
